FAERS Safety Report 19243267 (Version 1)
Quarter: 2021Q2

REPORT INFORMATION
  Report Type: Spontaneous
  Country: BE (occurrence: BE)
  Receive Date: 20210511
  Receipt Date: 20210511
  Transmission Date: 20210717
  Serious: Yes (Other)
  Sender: FDA-Public Use
  Company Number: BE-APOTEX-2021AP011917

PATIENT
  Age: 40 Year
  Sex: Female

DRUGS (7)
  1. PAROXETINE HYDROCHLORIDE. [Suspect]
     Active Substance: PAROXETINE HYDROCHLORIDE
     Indication: AFFECTIVE DISORDER
     Dosage: 20 MG, 1D
     Route: 065
  2. TRAZODONE [Concomitant]
     Active Substance: TRAZODONE HYDROCHLORIDE
     Indication: INSOMNIA
  3. PAROXETINE HYDROCHLORIDE. [Suspect]
     Active Substance: PAROXETINE HYDROCHLORIDE
     Indication: INSOMNIA
  4. BACLOFEN INTRATHECAL [Concomitant]
     Active Substance: BACLOFEN
     Dosage: 200 UG, 1D
     Route: 037
  5. BACLOFEN INTRATHECAL [Concomitant]
     Active Substance: BACLOFEN
     Dosage: 200 UG,L (MICROGRAM/ML BACLOFEN CONCENTRATION)
     Route: 037
  6. BACLOFEN INTRATHECAL [Concomitant]
     Active Substance: BACLOFEN
     Indication: HEREDITARY SPASTIC PARAPLEGIA
     Dosage: UNK
     Route: 037
  7. TRAZODONE [Concomitant]
     Active Substance: TRAZODONE HYDROCHLORIDE
     Indication: AFFECTIVE DISORDER
     Dosage: UNK
     Route: 065

REACTIONS (9)
  - Enterocolitis infectious [Recovered/Resolved]
  - Muscle spasms [Recovered/Resolved]
  - Serotonin syndrome [Recovered/Resolved]
  - Clonus [Recovered/Resolved]
  - Heart rate increased [Recovered/Resolved]
  - Condition aggravated [Recovered/Resolved]
  - Body temperature increased [Recovered/Resolved]
  - Hypertension [Recovered/Resolved]
  - Disease progression [Recovered/Resolved]
